FAERS Safety Report 9556739 (Version 1)
Quarter: 2013Q3

REPORT INFORMATION
  Report Type: Spontaneous
  Country: CA (occurrence: CA)
  Receive Date: 20130926
  Receipt Date: 20130926
  Transmission Date: 20140515
  Serious: Yes (Other)
  Sender: FDA-Public Use
  Company Number: CA-ASTRAZENECA-2013SE70724

PATIENT
  Age: 72 Year
  Sex: Male

DRUGS (2)
  1. ATACAND [Suspect]
     Route: 048
  2. XOLAIR [Suspect]
     Route: 058

REACTIONS (5)
  - Asthma [Unknown]
  - Blood pressure decreased [Unknown]
  - Increased upper airway secretion [Unknown]
  - Condition aggravated [Unknown]
  - Wheezing [Unknown]
